FAERS Safety Report 8371066-1 (Version None)
Quarter: 2012Q2

REPORT INFORMATION
  Report Type: 
  Country: None (occurrence: None)
  Receive Date: 20120518
  Receipt Date: 20110627
  Transmission Date: 20120825
  Serious: No
  Sender: FDA-Public Use
  Company Number: US-BRISTOL-MYERS SQUIBB COMPANY-15846694

PATIENT
  Age: 60 Year
  Sex: Male
  Weight: 62 kg

DRUGS (3)
  1. ZYRTEC [Concomitant]
  2. HYDROXYZINE [Concomitant]
  3. BARACLUDE [Suspect]
     Indication: HEPATITIS B
     Dosage: THERAPY FROM:ABOUT 2 YEARS AGO
     Route: 048

REACTIONS (1)
  - PRURITUS [None]
